FAERS Safety Report 7654212-4 (Version None)
Quarter: 2011Q3

REPORT INFORMATION
  Report Type: 
  Country: None (occurrence: None)
  Receive Date: 20110803
  Receipt Date: 20080827
  Transmission Date: 20111222
  Serious: Yes (Disabling, Other)
  Sender: FDA-Public Use
  Company Number: US-BAYER-200834796NA

PATIENT
  Age: 60 Year
  Sex: Female
  Weight: 40.363 kg

DRUGS (23)
  1. OPTIMARK [Suspect]
     Indication: NUCLEAR MAGNETIC RESONANCE IMAGING
  2. CARDIZEM [Concomitant]
  3. LISINOPRIL [Concomitant]
  4. EPOGEN [Concomitant]
  5. MAGNEVIST [Suspect]
     Indication: VENOGRAM
     Dosage: 50 ML
     Dates: start: 20060906, end: 20060906
  6. PREDNISONE [Concomitant]
  7. MAGNEVIST [Suspect]
     Dosage: 20 ML
     Dates: start: 20041008, end: 20041008
  8. OMNISCAN [Suspect]
     Indication: NUCLEAR MAGNETIC RESONANCE IMAGING
  9. SENSIPAR [Concomitant]
  10. COREG [Concomitant]
  11. COUMADIN [Concomitant]
  12. FERRLECIT [Concomitant]
  13. IMDUR [Concomitant]
  14. MAGNEVIST [Suspect]
     Indication: ANGIOGRAM
     Dosage: 35 ML, ONCE
     Route: 042
     Dates: start: 20010625, end: 20010625
  15. MAGNEVIST [Suspect]
     Indication: ANGIOPLASTY
     Dosage: 10 ML, ONCE
     Dates: start: 20010710, end: 20010710
  16. RENAGEL [Concomitant]
  17. MAGNEVIST [Suspect]
     Indication: CATHETER PLACEMENT
     Dosage: UNK, ONCE
     Dates: start: 20021203, end: 20021203
  18. PROHANCE [Suspect]
     Indication: NUCLEAR MAGNETIC RESONANCE IMAGING
  19. NORVASC [Concomitant]
  20. MAGNEVIST [Suspect]
     Indication: NUCLEAR MAGNETIC RESONANCE IMAGING
     Dosage: 30 ML, ONCE
     Route: 042
     Dates: start: 20000728, end: 20000728
  21. MAGNEVIST [Suspect]
     Indication: FISTULOGRAM
  22. MULTIHANCE [Suspect]
     Indication: NUCLEAR MAGNETIC RESONANCE IMAGING
  23. ZOCOR [Concomitant]

REACTIONS (16)
  - RASH MACULAR [None]
  - EXFOLIATIVE RASH [None]
  - PAIN [None]
  - PAIN OF SKIN [None]
  - ANXIETY [None]
  - DEPRESSION [None]
  - NEPHROGENIC SYSTEMIC FIBROSIS [None]
  - GENERAL PHYSICAL HEALTH DETERIORATION [None]
  - EMOTIONAL DISTRESS [None]
  - MOBILITY DECREASED [None]
  - HYPOAESTHESIA [None]
  - JOINT STIFFNESS [None]
  - OEDEMA PERIPHERAL [None]
  - ANHEDONIA [None]
  - INJURY [None]
  - SCAR [None]
